FAERS Safety Report 14959194 (Version 1)
Quarter: 2018Q2

REPORT INFORMATION
  Report Type: Spontaneous
  Country: FR (occurrence: FR)
  Receive Date: 20180531
  Receipt Date: 20180531
  Transmission Date: 20180711
  Serious: Yes (Hospitalization)
  Sender: FDA-Public Use
  Company Number: FR-TEVA-2018-FR-900329

PATIENT
  Age: 19 Year
  Sex: Male

DRUGS (5)
  1. PROPRANOLOL [Suspect]
     Active Substance: PROPRANOLOL HYDROCHLORIDE
     Indication: POISONING DELIBERATE
     Dosage: UNIT DOSE 40 MG
     Route: 048
     Dates: start: 20180228, end: 20180228
  2. PAROXETINE. [Suspect]
     Active Substance: PAROXETINE
     Indication: POISONING DELIBERATE
     Dosage: UNIT DOSE  20 MG
     Route: 048
     Dates: start: 20180228, end: 20180228
  3. TEMESTA 1 MG, COMPRIM? S?CABLE [Suspect]
     Active Substance: LORAZEPAM
     Indication: POISONING DELIBERATE
     Route: 048
     Dates: start: 20180228, end: 20180228
  4. QUITAXON 50 MG, COMPRIM? PELLICUL? S?CABLE [Suspect]
     Active Substance: DOXEPIN HYDROCHLORIDE
     Indication: POISONING DELIBERATE
     Route: 048
     Dates: start: 20180228, end: 20180228
  5. IMOVANE [Suspect]
     Active Substance: ZOPICLONE
     Indication: POISONING DELIBERATE
     Route: 048
     Dates: start: 20180228, end: 20180228

REACTIONS (2)
  - Pneumonia aspiration [Recovering/Resolving]
  - Coma [Recovered/Resolved]

NARRATIVE: CASE EVENT DATE: 20180228
